FAERS Safety Report 7558422-6 (Version None)
Quarter: 2011Q2

REPORT INFORMATION
  Report Type: 
  Country: None (occurrence: None)
  Receive Date: 20110620
  Receipt Date: 20110609
  Transmission Date: 20111010
  Serious: Yes (Death, Hospitalization)
  Sender: FDA-Public Use
  Company Number: PHHY2011DE35935

PATIENT
  Age: 80 Year
  Sex: Female

DRUGS (3)
  1. AFINITOR [Suspect]
     Indication: PANCREATIC NEUROENDOCRINE TUMOUR
     Dosage: 10 MG, QD
     Route: 048
     Dates: start: 20110409, end: 20110506
  2. PREDNISOLONE [Concomitant]
     Indication: DYSPNOEA
     Dosage: 50 MG, QD
     Route: 048
     Dates: start: 20110506, end: 20110510
  3. SANDOSTATIN LAR [Concomitant]
     Indication: DIARRHOEA
     Dosage: 20 MG, QMO
     Route: 030
     Dates: start: 20101213, end: 20110506

REACTIONS (4)
  - GOUT [None]
  - NEOPLASM MALIGNANT [None]
  - PODAGRA [None]
  - PANCYTOPENIA [None]
